FAERS Safety Report 7938986-0 (Version None)
Quarter: 2011Q4

REPORT INFORMATION
  Report Type: 
  Country: None (occurrence: None)
  Receive Date: 20111124
  Receipt Date: 20111117
  Transmission Date: 20120403
  Serious: No
  Sender: FDA-Public Use
  Company Number: US-PFIZER INC-2011094461

PATIENT
  Sex: Female
  Weight: 58.503 kg

DRUGS (8)
  1. PREDNISONE [Concomitant]
     Dosage: UNK
  2. EXEMESTANE [Suspect]
     Indication: BREAST CANCER METASTATIC
     Dosage: 25 MG, 1X/DAY
     Route: 048
     Dates: start: 20100410
  3. DENOSUMAB [Suspect]
     Dosage: UNK
     Dates: start: 20110411, end: 20110801
  4. HYDROCODONE [Concomitant]
     Dosage: UNK
  5. MONTELUKAST [Concomitant]
     Dosage: UNK
  6. SYNTHROID [Concomitant]
     Dosage: UNK
  7. EFFEXOR [Concomitant]
     Dosage: UNK
  8. VITAMIN D [Concomitant]
     Dosage: UNK

REACTIONS (4)
  - PAIN IN EXTREMITY [None]
  - FEELING ABNORMAL [None]
  - DIARRHOEA [None]
  - PAIN [None]
